FAERS Safety Report 9293111 (Version 1)
Quarter: 2013Q2

REPORT INFORMATION
  Report Type: Spontaneous
  Country: US (occurrence: None)
  Receive Date: 20130514
  Receipt Date: 20130514
  Transmission Date: 20140414
  Serious: Yes (Life-Threatening, Other)
  Sender: FDA-Public Use
  Company Number: 001532388A

PATIENT
  Age: 20 Year
  Sex: Female

DRUGS (3)
  1. PROACTIV RENEWING CLEANSER [Suspect]
     Indication: ACNE
     Route: 059
     Dates: start: 20130927
  2. PROACTIV REPAIRING TREATMENT [Suspect]
     Indication: ACNE
     Route: 059
     Dates: start: 20130427
  3. PROACTIV REFINING MASK [Suspect]
     Indication: ACNE

REACTIONS (6)
  - Swollen tongue [None]
  - Eye swelling [None]
  - Lip swelling [None]
  - Swelling face [None]
  - Speech disorder [None]
  - Dyspnoea [None]
